FAERS Safety Report 8501387-0 (Version None)
Quarter: 2012Q3

REPORT INFORMATION
  Report Type: 
  Country: None (occurrence: None)
  Receive Date: 20120710
  Receipt Date: 20120628
  Transmission Date: 20120928
  Serious: Yes (Hospitalization)
  Sender: FDA-Public Use
  Company Number: US-MYLANLABS-2012S1006171

PATIENT
  Age: 47 Year
  Sex: Female
  Weight: 86.18 kg

DRUGS (4)
  1. TAMOXIFEN TABLETS [Suspect]
     Indication: NEOPLASM PROPHYLAXIS
     Route: 048
     Dates: start: 20080601, end: 20120201
  2. VITAMIN D [Concomitant]
  3. DIOVAN [Concomitant]
  4. TAMOXIFEN TABLETS [Suspect]
     Indication: PRECANCEROUS CELLS PRESENT
     Route: 048
     Dates: start: 20080601, end: 20120201

REACTIONS (1)
  - PELVIC MASS [None]
